FAERS Safety Report 19898417 (Version 1)
Quarter: 2021Q3

REPORT INFORMATION
  Report Type: Spontaneous
  Country: US (occurrence: US)
  Receive Date: 20210929
  Receipt Date: 20210929
  Transmission Date: 20211014
  Serious: No
  Sender: FDA-Public Use
  Company Number: US-SAMSUNG BIOEPIS-SB-2020-38338

PATIENT
  Age: 74 Year
  Sex: Male

DRUGS (5)
  1. RENFLEXIS [Suspect]
     Active Substance: INFLIXIMAB-ABDA
     Dosage: AT WEEK ZERO
     Route: 065
     Dates: start: 202009
  2. RENFLEXIS [Suspect]
     Active Substance: INFLIXIMAB-ABDA
     Dosage: AT WEEK TWO
     Route: 065
  3. RENFLEXIS [Suspect]
     Active Substance: INFLIXIMAB-ABDA
     Route: 042
     Dates: start: 202009, end: 20201125
  4. RENFLEXIS [Suspect]
     Active Substance: INFLIXIMAB-ABDA
     Indication: COLITIS ULCERATIVE
     Route: 041
     Dates: start: 202009, end: 202009
  5. RENFLEXIS [Suspect]
     Active Substance: INFLIXIMAB-ABDA
     Dosage: AT WEEK SIX
     Route: 065

REACTIONS (3)
  - Drug ineffective [Unknown]
  - Middle insomnia [Unknown]
  - Incontinence [Unknown]

NARRATIVE: CASE EVENT DATE: 20200924
